FAERS Safety Report 6819842-8 (Version None)
Quarter: 2010Q3

REPORT INFORMATION
  Report Type: 
  Country: None (occurrence: None)
  Receive Date: 20100707
  Receipt Date: 20100630
  Transmission Date: 20110219
  Serious: Yes (Other)
  Sender: FDA-Public Use
  Company Number: US-ASTRAZENECA-2010SE30570

PATIENT
  Age: 677 Month
  Sex: Female
  Weight: 86.2 kg

DRUGS (6)
  1. SEROQUEL [Suspect]
     Indication: BIPOLAR DISORDER
     Route: 048
  2. EFFEXOR XR [Concomitant]
     Indication: DEPRESSION
     Route: 048
  3. TRAZODONE HYDROCHLORIDE [Concomitant]
     Indication: DEPRESSION
     Route: 048
  4. SYNTHROID [Concomitant]
     Indication: HYPOTHYROIDISM
     Route: 048
  5. SIMVASTATIN [Concomitant]
     Indication: HYPERCHLORAEMIA
     Route: 048
     Dates: start: 20090101
  6. SIMVASTATIN [Concomitant]
     Indication: HYPERTRIGLYCERIDAEMIA
     Route: 048
     Dates: start: 20090101

REACTIONS (2)
  - ATRIOVENTRICULAR BLOCK [None]
  - CHEST DISCOMFORT [None]
